FAERS Safety Report 6133355-0 (Version None)
Quarter: 2009Q1

REPORT INFORMATION
  Report Type: 
  Country: None (occurrence: None)
  Receive Date: 20090326
  Receipt Date: 20090302
  Transmission Date: 20090719
  Serious: Yes (Hospitalization, Other)
  Sender: FDA-Public Use
  Company Number: FR-PFIZER INC-2008025499

PATIENT

DRUGS (3)
  1. XALATAN [Suspect]
     Indication: HYPERTONIA
     Route: 047
     Dates: start: 20041201
  2. XALATAN [Suspect]
     Indication: EXTRAOCULAR MUSCLE DISORDER
  3. COSOPT [Suspect]
     Indication: HYPERTONIA

REACTIONS (4)
  - CHOROID MELANOMA [None]
  - CONDITION AGGRAVATED [None]
  - EYE PAIN [None]
  - METASTASES TO LIVER [None]
